FAERS Safety Report 22356855 (Version 1)
Quarter: 2023Q2

REPORT INFORMATION
  Report Type: Spontaneous
  Country: US (occurrence: US)
  Receive Date: 20230523
  Receipt Date: 20230523
  Transmission Date: 20230721
  Serious: Yes (Other)
  Sender: FDA-Public Use
  Company Number: US-AIMMUNE THERAPEUTICS, INC.-2023AIMT00452

PATIENT

DRUGS (3)
  1. PALFORZIA [Suspect]
     Active Substance: PEANUT
     Indication: Food allergy
     Dosage: IDE (0.5-6MG), ONCE
     Route: 048
     Dates: start: 2023, end: 2023
  2. PALFORZIA [Suspect]
     Active Substance: PEANUT
     Dosage: 6MG, 1X/DAY
     Route: 048
     Dates: start: 2023
  3. PALFORZIA [Suspect]
     Active Substance: PEANUT
     Dosage: 6MG, ONCE, LAST DOSE PRIOR TO EVENTS
     Route: 048
     Dates: start: 2023, end: 2023

REACTIONS (4)
  - Eosinophilic oesophagitis [Unknown]
  - Decreased appetite [Unknown]
  - Nausea [Unknown]
  - Vomiting [Unknown]
